FAERS Safety Report 18111540 (Version 1)
Quarter: 2020Q3

REPORT INFORMATION
  Report Type: Report from Study
  Country: JP (occurrence: JP)
  Receive Date: 20200805
  Receipt Date: 20200805
  Transmission Date: 20201103
  Serious: Yes (Death, Hospitalization, Other)
  Sender: FDA-Public Use
  Company Number: JP-AMGEN-JPNCT2016074767

PATIENT
  Age: 71 Year
  Sex: Male

DRUGS (35)
  1. BROCIN?CODEINE [Concomitant]
     Dosage: 4.5 ML
     Route: 048
     Dates: start: 20170210
  2. DARBEPOETIN ALFA [Suspect]
     Active Substance: DARBEPOETIN ALFA
     Dosage: 240 MICROGRAM, QWK
     Route: 058
     Dates: start: 20150624, end: 20161227
  3. MAGMITT [Concomitant]
     Active Substance: MAGNESIUM OXIDE
     Dosage: 1500 MG
     Route: 048
     Dates: start: 20150909
  4. ALENDRONATE [Concomitant]
     Active Substance: ALENDRONATE SODIUM
     Dosage: 35 MG, 1X/WEEK
     Route: 048
     Dates: start: 20151225, end: 20170117
  5. LEVOFLOXACIN HEMIHYDRATE [Concomitant]
     Active Substance: LEVOFLOXACIN
     Indication: PNEUMONIA
     Dosage: 500 MG
     Route: 048
     Dates: start: 20151230, end: 20160201
  6. CLARITH [Concomitant]
     Active Substance: CLARITHROMYCIN
     Dosage: 400 MG
     Route: 048
     Dates: start: 20160726, end: 20160801
  7. TAZOPIPE [Concomitant]
     Active Substance: PIPERACILLIN SODIUM\TAZOBACTAM SODIUM
     Dosage: 13.5 G
     Route: 065
     Dates: start: 20170211
  8. DARBEPOETIN ALFA [Suspect]
     Active Substance: DARBEPOETIN ALFA
     Dosage: 240 MICROGRAM, QWK
     Route: 058
     Dates: start: 20150513, end: 20150610
  9. MAXIPIME [Concomitant]
     Active Substance: CEFEPIME HYDROCHLORIDE
     Dosage: 4 G
     Route: 065
     Dates: start: 20151221, end: 20151229
  10. PANTOSIN [Concomitant]
     Active Substance: PANTETHINE
     Dosage: 1.5 G
     Route: 048
     Dates: start: 20150909
  11. TAMIFLU [Concomitant]
     Active Substance: OSELTAMIVIR PHOSPHATE
     Dosage: 150 MG
     Route: 048
     Dates: start: 20170130, end: 20170203
  12. POLARAMINE [Concomitant]
     Active Substance: DEXCHLORPHENIRAMINE MALEATE
     Dosage: 6 MG
     Route: 048
     Dates: start: 20170130, end: 20170205
  13. DARBEPOETIN ALFA [Suspect]
     Active Substance: DARBEPOETIN ALFA
     Dosage: 240 MICROGRAM, QWK
     Route: 058
     Dates: start: 20170110, end: 20170206
  14. TRAMCET [Concomitant]
     Active Substance: ACETAMINOPHEN\TRAMADOL
     Indication: ARTHRALGIA
     Dosage: 1 DF, PRN
     Route: 048
     Dates: end: 20150601
  15. BUP?4 [Concomitant]
     Active Substance: PROPIVERINE
     Dosage: 10 MG
     Route: 048
     Dates: start: 20150916, end: 20151013
  16. DARBEPOETIN ALFA [Suspect]
     Active Substance: DARBEPOETIN ALFA
     Dosage: 240 MICROGRAM, QWK
     Route: 058
     Dates: start: 20150304, end: 20150501
  17. MEROPENEM. [Concomitant]
     Active Substance: MEROPENEM
     Dosage: 2 G
     Route: 065
     Dates: start: 20150824, end: 20150904
  18. MEROPENEM. [Concomitant]
     Active Substance: MEROPENEM
     Dosage: 2 G
     Route: 065
     Dates: start: 20150919, end: 20150925
  19. PREDNISOLONE. [Concomitant]
     Active Substance: PREDNISOLONE
     Indication: MYELODYSPLASTIC SYNDROME
     Dosage: 20 MG
     Route: 048
     Dates: start: 20150909, end: 20160104
  20. PREDNISOLONE. [Concomitant]
     Active Substance: PREDNISOLONE
     Dosage: 4 MG
     Route: 048
     Dates: start: 20160105, end: 20170217
  21. CLINDAMYCIN [CLINDAMYCIN PHOSPHATE] [Concomitant]
     Dosage: 1200 MG
     Route: 065
     Dates: start: 20170210
  22. DARBEPOETIN ALFA [Suspect]
     Active Substance: DARBEPOETIN ALFA
     Indication: MYELODYSPLASTIC SYNDROME
     Dosage: 120 MICROGRAM, QWK
     Route: 058
     Dates: start: 20150218, end: 20150218
  23. REBAMIPIDE [Concomitant]
     Active Substance: REBAMIPIDE
     Indication: GASTRIC ULCER
     Dosage: 300 MG
     Route: 048
     Dates: end: 20161004
  24. DAIPHEN [Concomitant]
     Active Substance: SULFAMETHOXAZOLE\TRIMETHOPRIM
     Dosage: 3/7 DF
     Route: 048
     Dates: start: 20151013
  25. ASTOMIN [DIMEMORFAN PHOSPHATE] [Concomitant]
     Dosage: 30 MG
     Route: 048
     Dates: start: 20170130, end: 20170205
  26. NEXIUM [Concomitant]
     Active Substance: ESOMEPRAZOLE MAGNESIUM
     Indication: GASTRIC ULCER
     Dosage: 20 MG
     Route: 048
  27. NEORAL [Concomitant]
     Active Substance: CYCLOSPORINE
     Indication: MYELODYSPLASTIC SYNDROME
     Dosage: 200 MG
     Route: 048
     Dates: end: 20150701
  28. ULCERLMIN [Concomitant]
     Active Substance: SUCRALFATE
     Indication: GASTRIC ULCER
     Dosage: 3 G
     Route: 048
     Dates: end: 20161004
  29. MAXIPIME [Concomitant]
     Active Substance: CEFEPIME HYDROCHLORIDE
     Dosage: 4 G
     Route: 065
     Dates: start: 20150905, end: 20150918
  30. MAXIPIME [Concomitant]
     Active Substance: CEFEPIME HYDROCHLORIDE
     Dosage: 4 G
     Route: 065
     Dates: start: 20170209, end: 20170212
  31. LEVOFLOXACIN HEMIHYDRATE [Concomitant]
     Active Substance: LEVOFLOXACIN
     Dosage: 500 MG
     Route: 048
     Dates: start: 20160226, end: 20160427
  32. PENTAGIN [PENTAZOCINE HYDROCHLORIDE] [Concomitant]
     Dosage: 13 MG
     Route: 065
     Dates: start: 20170207, end: 20170212
  33. PROMAC D [Concomitant]
     Active Substance: POLAPREZINC
     Indication: GASTRIC ULCER
     Dosage: 150 MG
     Route: 048
  34. MAXIPIME [Concomitant]
     Active Substance: CEFEPIME HYDROCHLORIDE
     Dosage: 4 G
     Route: 065
     Dates: start: 20150819, end: 20150824
  35. MAXIPIME [Concomitant]
     Active Substance: CEFEPIME HYDROCHLORIDE
     Dosage: 4 G
     Route: 065
     Dates: start: 20160201, end: 20160226

REACTIONS (10)
  - Influenza [Recovered/Resolved]
  - Pyrexia [Recovered/Resolved]
  - Upper respiratory tract inflammation [Recovered/Resolved]
  - Influenza [Recovered/Resolved]
  - Hypertonic bladder [Recovering/Resolving]
  - Pneumonia [Recovered/Resolved]
  - Pneumonia [Recovered/Resolved]
  - Pyrexia [Recovered/Resolved]
  - Transformation to acute myeloid leukaemia [Fatal]
  - Liver abscess [Recovering/Resolving]

NARRATIVE: CASE EVENT DATE: 20150819
